FAERS Safety Report 5649106-X (Version None)
Quarter: 2008Q1

REPORT INFORMATION
  Report Type: 
  Country: None (occurrence: None)
  Receive Date: 20080229
  Receipt Date: 20080213
  Transmission Date: 20080703
  Serious: Yes (Other)
  Sender: FDA-Public Use
  Company Number: PAR_02115_2008

PATIENT
  Age: 35 Year
  Sex: Male

DRUGS (4)
  1. DOXYCYCLINE [Suspect]
     Indication: MYCOPLASMA INFECTION
     Dosage: (200 MG), (100 MG)
  2. DOXYCYCLINE [Suspect]
     Indication: PROPHYLAXIS
     Dosage: (200 MG), (100 MG)
  3. DOXYCYCLINE [Suspect]
     Indication: MYCOPLASMA INFECTION
     Dosage: (200 MG), (100 MG)
  4. DOXYCYCLINE [Suspect]
     Indication: PROPHYLAXIS
     Dosage: (200 MG), (100 MG)

REACTIONS (4)
  - BENIGN INTRACRANIAL HYPERTENSION [None]
  - BLINDNESS [None]
  - OPTIC ATROPHY [None]
  - VISUAL FIELD DEFECT [None]
